FAERS Safety Report 13872520 (Version 1)
Quarter: 2017Q3

REPORT INFORMATION
  Report Type: Report from Study
  Country: US (occurrence: US)
  Receive Date: 20170816
  Receipt Date: 20170816
  Transmission Date: 20171127
  Serious: Yes (Disabling)
  Sender: FDA-Public Use
  Company Number: US-TEVA-796603USA

PATIENT
  Age: 69 Year
  Sex: Female

DRUGS (1)
  1. AUSTEDO [Suspect]
     Active Substance: DEUTETRABENAZINE
     Indication: HUNTINGTON^S DISEASE
     Route: 065
     Dates: start: 20170707, end: 2017

REACTIONS (2)
  - Somnolence [Unknown]
  - Bedridden [Unknown]

NARRATIVE: CASE EVENT DATE: 201707
